FAERS Safety Report 20594571 (Version 2)
Quarter: 2022Q4

REPORT INFORMATION
  Report Type: Report from Study
  Country: GR (occurrence: GR)
  Receive Date: 20220315
  Receipt Date: 20221125
  Transmission Date: 20230113
  Serious: Yes (Other)
  Sender: FDA-Public Use
  Company Number: GR-TAKEDA-2022TUS015802

PATIENT
  Age: 32 Year
  Sex: Female
  Weight: 100 kg

DRUGS (31)
  1. PARATHYROID HORMONE [Suspect]
     Active Substance: PARATHYROID HORMONE
     Indication: Hypoparathyroidism
     Dosage: 50 MILLIGRAM, QD
     Route: 065
     Dates: start: 20200930, end: 20210326
  2. PARATHYROID HORMONE [Suspect]
     Active Substance: PARATHYROID HORMONE
     Indication: Hypoparathyroidism
     Dosage: 50 MILLIGRAM, QD
     Route: 065
     Dates: start: 20200930, end: 20210326
  3. PARATHYROID HORMONE [Suspect]
     Active Substance: PARATHYROID HORMONE
     Indication: Hypoparathyroidism
     Dosage: 50 MILLIGRAM, QD
     Route: 065
     Dates: start: 20200930, end: 20210326
  4. PARATHYROID HORMONE [Suspect]
     Active Substance: PARATHYROID HORMONE
     Dosage: 75 MILLIGRAM, QD
     Route: 065
     Dates: start: 20210327, end: 20220914
  5. PARATHYROID HORMONE [Suspect]
     Active Substance: PARATHYROID HORMONE
     Dosage: 75 MILLIGRAM, QD
     Route: 065
     Dates: start: 20210327, end: 20220914
  6. PARATHYROID HORMONE [Suspect]
     Active Substance: PARATHYROID HORMONE
     Dosage: 75 MILLIGRAM, QD
     Route: 065
     Dates: start: 20210327, end: 20220914
  7. PARATHYROID HORMONE [Suspect]
     Active Substance: PARATHYROID HORMONE
     Dosage: 50 MILLIGRAM, QD
     Route: 065
     Dates: start: 20220915, end: 20220915
  8. PARATHYROID HORMONE [Suspect]
     Active Substance: PARATHYROID HORMONE
     Dosage: 50 MILLIGRAM, QD
     Route: 065
     Dates: start: 20220915, end: 20220915
  9. PARATHYROID HORMONE [Suspect]
     Active Substance: PARATHYROID HORMONE
     Dosage: 50 MILLIGRAM, QD
     Route: 065
     Dates: start: 20220915, end: 20220915
  10. PARATHYROID HORMONE [Suspect]
     Active Substance: PARATHYROID HORMONE
     Dosage: 75 MILLIGRAM, QD
     Route: 065
     Dates: start: 20220918, end: 20220929
  11. PARATHYROID HORMONE [Suspect]
     Active Substance: PARATHYROID HORMONE
     Dosage: 75 MILLIGRAM, QD
     Route: 065
     Dates: start: 20220918, end: 20220929
  12. PARATHYROID HORMONE [Suspect]
     Active Substance: PARATHYROID HORMONE
     Dosage: 75 MILLIGRAM, QD
     Route: 065
     Dates: start: 20220918, end: 20220929
  13. PARATHYROID HORMONE [Suspect]
     Active Substance: PARATHYROID HORMONE
     Dosage: 100 MILLIGRAM, QD
     Route: 065
     Dates: start: 20220930
  14. PARATHYROID HORMONE [Suspect]
     Active Substance: PARATHYROID HORMONE
     Dosage: 100 MILLIGRAM, QD
     Route: 065
     Dates: start: 20220930
  15. PARATHYROID HORMONE [Suspect]
     Active Substance: PARATHYROID HORMONE
     Dosage: 100 MILLIGRAM, QD
     Route: 065
     Dates: start: 20220930
  16. LEVOTHYROXINE SODIUM [Concomitant]
     Active Substance: LEVOTHYROXINE SODIUM
     Indication: Thyroidectomy
     Dosage: UNK
     Route: 048
     Dates: start: 20190619
  17. DESLORATADINE [Concomitant]
     Active Substance: DESLORATADINE
     Indication: Rash
     Dosage: UNK
     Route: 048
     Dates: start: 20210226, end: 20210326
  18. LEVOCETIRIZINE [Concomitant]
     Active Substance: LEVOCETIRIZINE
     Indication: Rash
     Dosage: UNK
     Route: 048
     Dates: start: 20210226, end: 20210326
  19. LEVOCETIRIZINE [Concomitant]
     Active Substance: LEVOCETIRIZINE
     Dosage: UNK
     Route: 048
     Dates: start: 20220907
  20. IRON [Concomitant]
     Active Substance: IRON
     Indication: Anaemia
     Dosage: UNK
     Route: 048
     Dates: start: 20210226
  21. ASPIRIN [Concomitant]
     Active Substance: ASPIRIN
     Indication: Multiple sclerosis
     Dosage: UNK
     Route: 048
     Dates: start: 20211202, end: 20220912
  22. DIMETHYL FUMARATE [Concomitant]
     Active Substance: DIMETHYL FUMARATE
     Indication: Anaemia
     Dosage: UNK
     Route: 048
     Dates: start: 20211206, end: 20220912
  23. METHYLPREDNISOLONE [Concomitant]
     Active Substance: METHYLPREDNISOLONE
     Indication: Multiple sclerosis
     Dosage: UNK
     Route: 042
     Dates: start: 20210813, end: 20210914
  24. METHYLPREDNISOLONE [Concomitant]
     Active Substance: METHYLPREDNISOLONE
     Dosage: UNK
     Route: 042
     Dates: start: 20220913, end: 20220913
  25. BILASTINE [Concomitant]
     Active Substance: BILASTINE
     Indication: Rash
     Dosage: UNK
     Route: 048
     Dates: start: 20220928, end: 20220930
  26. ESOMEPRAZOLE [Concomitant]
     Active Substance: ESOMEPRAZOLE
     Indication: Gastrointestinal disorder prophylaxis
     Dosage: UNK
     Route: 048
     Dates: start: 20221012
  27. OMEPRAZOLE [Concomitant]
     Active Substance: OMEPRAZOLE
     Indication: Gastrointestinal disorder prophylaxis
     Dosage: UNK
     Route: 042
     Dates: start: 20220911, end: 20220914
  28. OMEPRAZOLE [Concomitant]
     Active Substance: OMEPRAZOLE
     Dosage: UNK
     Route: 042
     Dates: start: 20220918, end: 20220919
  29. ACETAMINOPHEN [Concomitant]
     Active Substance: ACETAMINOPHEN
     Indication: Abdominal pain
     Dosage: UNK
     Route: 042
     Dates: start: 20220911, end: 20220911
  30. TRAMADOL [Concomitant]
     Active Substance: TRAMADOL
     Indication: Abdominal pain
     Dosage: UNK
     Route: 042
     Dates: start: 20220911, end: 20220911
  31. DIMETHINDENE [Concomitant]
     Active Substance: DIMETHINDENE
     Indication: Rash
     Dosage: UNK
     Route: 042
     Dates: start: 20220913, end: 20220913

REACTIONS (1)
  - Multiple sclerosis [Not Recovered/Not Resolved]

NARRATIVE: CASE EVENT DATE: 20211202
